FAERS Safety Report 5592517-1 (Version None)
Quarter: 2008Q1

REPORT INFORMATION
  Report Type: 
  Country: None (occurrence: None)
  Receive Date: 20080115
  Receipt Date: 20080109
  Transmission Date: 20080703
  Serious: Yes (Death)
  Sender: FDA-Public Use
  Company Number: US-PFIZER INC-2008002798

PATIENT
  Age: 46 Year
  Sex: Female

DRUGS (3)
  1. GLIPIZIDE [Suspect]
  2. CLORAZEPATE [Suspect]
  3. DRUG, UNSPECIFIED [Suspect]

REACTIONS (1)
  - COMPLETED SUICIDE [None]
